FAERS Safety Report 6822582-2 (Version None)
Quarter: 2010Q3

REPORT INFORMATION
  Report Type: 
  Country: None (occurrence: None)
  Receive Date: 20100708
  Receipt Date: 20080109
  Transmission Date: 20110219
  Serious: No
  Sender: FDA-Public Use
  Company Number: US-PFIZER INC-2008003253

PATIENT

DRUGS (1)
  1. ZOLOFT [Suspect]
     Dates: start: 20080103

REACTIONS (1)
  - DRUG SCREEN FALSE POSITIVE [None]
